FAERS Safety Report 17726273 (Version 1)
Quarter: 2020Q2

REPORT INFORMATION
  Report Type: Spontaneous
  Country: US (occurrence: US)
  Receive Date: 20200429
  Receipt Date: 20200429
  Transmission Date: 20200714
  Serious: Yes (Other)
  Sender: FDA-Public Use
  Company Number: US-AUROBINDO-AUR-APL-2020-020865

PATIENT
  Age: 15 Year
  Sex: Female

DRUGS (6)
  1. METHYLPREDNISOLONE. [Suspect]
     Active Substance: METHYLPREDNISOLONE
     Indication: IMMUNOSUPPRESSANT DRUG THERAPY
     Dosage: PULSE THERAPY
     Route: 065
  2. METHYLPREDNISOLONE. [Suspect]
     Active Substance: METHYLPREDNISOLONE
     Indication: INFLAMMATION
     Dosage: UNK
     Route: 042
  3. INFLIXIMAB [Suspect]
     Active Substance: INFLIXIMAB
     Indication: IMMUNOSUPPRESSANT DRUG THERAPY
     Dosage: UNK
     Route: 065
  4. PREDNISONE. [Suspect]
     Active Substance: PREDNISONE
     Indication: IMMUNOSUPPRESSANT DRUG THERAPY
     Dosage: UNK UNK, ONCE A DAY
     Route: 048
  5. TOCILIZUMAB. [Suspect]
     Active Substance: TOCILIZUMAB
     Indication: IMMUNOSUPPRESSANT DRUG THERAPY
     Dosage: MONTHLY
     Route: 065
  6. ASPIRIN. [Concomitant]
     Active Substance: ASPIRIN
     Indication: IMMUNOSUPPRESSANT DRUG THERAPY
     Dosage: MONTHLY
     Route: 065

REACTIONS (4)
  - Vasculitis [Recovered/Resolved]
  - Cryptococcal fungaemia [Recovered/Resolved]
  - Rheumatoid lung [Recovered/Resolved]
  - Abdominal pain [Recovered/Resolved]
